FAERS Safety Report 5715679-1 (Version None)
Quarter: 2008Q2

REPORT INFORMATION
  Report Type: 
  Country: None (occurrence: None)
  Receive Date: 20080424
  Receipt Date: 20080416
  Transmission Date: 20081010
  Serious: Yes (Hospitalization)
  Sender: FDA-Public Use
  Company Number: US-JNJFOC-20080404710

PATIENT
  Sex: Female
  Weight: 56.25 kg

DRUGS (2)
  1. FENTANYL TRANSDERMAL SYSTEM [Suspect]
     Indication: BACK PAIN
     Route: 062
  2. FENTANYL TRANSDERMAL SYSTEM [Suspect]
     Indication: BACK PAIN
     Route: 062

REACTIONS (6)
  - APPENDICITIS [None]
  - BACK PAIN [None]
  - INCORRECT DRUG ADMINISTRATION DURATION [None]
  - PHARMACEUTICAL PRODUCT COMPLAINT [None]
  - WEIGHT DECREASED [None]
  - WRONG TECHNIQUE IN DRUG USAGE PROCESS [None]
